FAERS Safety Report 8785011 (Version 1)
Quarter: 2012Q4

REPORT INFORMATION
  Report Type: Spontaneous
  Country: MX (occurrence: None)
  Receive Date: 20120831
  Receipt Date: 20120831
  Transmission Date: 20130627
  Serious: Yes (Other)
  Sender: FDA-Public Use
  Company Number: ENTC2012-0396

PATIENT
  Age: 85 Year
  Sex: Female

DRUGS (5)
  1. STALEVO (LEVODOPA, CARBIDOPA, ENTACAPONE) [Suspect]
  2. STALEVO (LEVODOPA, CARBIDOPA, ENTACAPONE) [Suspect]
  3. CO-DIOVAN [Suspect]
     Dates: start: 201102
  4. OMEPRAZOL [Concomitant]
  5. SENOKOT [Concomitant]

REACTIONS (3)
  - Body temperature increased [None]
  - Blood pressure decreased [None]
  - Ankle fracture [None]
